FAERS Safety Report 8562450 (Version 2)
Quarter: 2012Q4

REPORT INFORMATION
  Report Type: 
  Country: US (occurrence: US)
  Receive Date: 20120515
  Receipt Date: 20121015
  Transmission Date: 20130627
  Serious: Yes (Hospitalization)
  Sender: FDA-Public Use
  Company Number: US-BAYER-2012-046198

PATIENT
  Age: 25 Year
  Sex: Female

DRUGS (6)
  1. YASMIN [Suspect]
  2. YAZ [Suspect]
  3. ZARAH [Concomitant]
     Indication: CONTRACEPTION
  4. IBUPROFEN [Concomitant]
  5. PRILOSEC [Concomitant]
  6. ANTACIDS [Concomitant]

REACTIONS (6)
  - Pulmonary embolism [None]
  - Injury [None]
  - Pain [None]
  - Anxiety [None]
  - Anhedonia [None]
  - Quality of life decreased [None]
